FAERS Safety Report 25182617 (Version 1)
Quarter: 2025Q2

REPORT INFORMATION
  Report Type: Spontaneous
  Country: FR (occurrence: FR)
  Receive Date: 20250410
  Receipt Date: 20250410
  Transmission Date: 20250717
  Serious: Yes (Hospitalization)
  Sender: RANBAXY
  Company Number: FR-SUN PHARMACEUTICAL INDUSTRIES LTD-2025RR-502746

PATIENT
  Age: 82 Year
  Sex: Male
  Weight: 49 kg

DRUGS (13)
  1. PANTOPRAZOLE [Suspect]
     Active Substance: PANTOPRAZOLE
     Indication: Product used for unknown indication
     Dosage: 40 MILLIGRAM, DAILY
     Route: 040
     Dates: start: 20230707, end: 20230720
  2. PANTOPRAZOLE [Suspect]
     Active Substance: PANTOPRAZOLE
     Dosage: 40 MILLIGRAM, BID
     Route: 040
     Dates: start: 20230721, end: 20230725
  3. PANTOPRAZOLE [Suspect]
     Active Substance: PANTOPRAZOLE
     Dosage: 40 MILLIGRAM, DAILY
     Route: 040
     Dates: start: 20230726, end: 20230728
  4. PANTOPRAZOLE [Suspect]
     Active Substance: PANTOPRAZOLE
     Dosage: 40 MILLIGRAM, DAILY
     Route: 065
     Dates: start: 20230824, end: 20230907
  5. ESOMEPRAZOLE [Suspect]
     Active Substance: ESOMEPRAZOLE
     Indication: Product used for unknown indication
     Dosage: 20 MILLIGRAM, DAILY
     Route: 048
     Dates: end: 20230620
  6. ESOMEPRAZOLE [Suspect]
     Active Substance: ESOMEPRAZOLE
     Dosage: 40 MG 2F/DAY
     Route: 040
     Dates: start: 20230702, end: 20230706
  7. LANSOPRAZOLE [Suspect]
     Active Substance: LANSOPRAZOLE
     Indication: Product used for unknown indication
     Dosage: 15 MILLIGRAM, DAILY
     Route: 048
     Dates: start: 20230622, end: 20230626
  8. AMOXICILLIN\CLAVULANIC ACID [Suspect]
     Active Substance: AMOXICILLIN\CLAVULANIC ACID
     Indication: Infection
     Dosage: 1G THREE TIMES A DAY
     Route: 048
     Dates: start: 20230629, end: 20230706
  9. AMOXICILLIN\CLAVULANIC ACID [Suspect]
     Active Substance: AMOXICILLIN\CLAVULANIC ACID
     Dosage: 1 G 3 FOIS PAR JOUR PER OS
     Route: 048
     Dates: start: 20230801, end: 20230803
  10. PIPERACILLIN AND TAZOBACTAM [Suspect]
     Active Substance: PIPERACILLIN SODIUM\TAZOBACTAM SODIUM
     Indication: Infection
     Dosage: 4 GRAM, BID
     Route: 040
     Dates: start: 20230709, end: 20230710
  11. PIPERACILLIN AND TAZOBACTAM [Suspect]
     Active Substance: PIPERACILLIN SODIUM\TAZOBACTAM SODIUM
     Dosage: 4 GRAM, BID
     Route: 040
     Dates: start: 20230713, end: 20230723
  12. PIPERACILLIN AND TAZOBACTAM [Suspect]
     Active Substance: PIPERACILLIN SODIUM\TAZOBACTAM SODIUM
     Dosage: 4 GRAM, BID
     Route: 040
     Dates: start: 20230807, end: 20230814
  13. CIPROFLOXACIN [Suspect]
     Active Substance: CIPROFLOXACIN
     Indication: Infection
     Dosage: 750 MILLIGRAM, BID
     Route: 048
     Dates: start: 20230710, end: 20230713

REACTIONS (2)
  - Thrombocytopenia [Recovering/Resolving]
  - Confusional state [Recovering/Resolving]

NARRATIVE: CASE EVENT DATE: 20230704
